FAERS Safety Report 6143555-1 (Version None)
Quarter: 2009Q2

REPORT INFORMATION
  Report Type: 
  Country: None (occurrence: None)
  Receive Date: 20090403
  Receipt Date: 20090323
  Transmission Date: 20091009
  Serious: Yes (Other)
  Sender: FDA-Public Use
  Company Number: GB-PFIZER INC-2009192417

PATIENT

DRUGS (1)
  1. NICOTINE [Suspect]
     Dosage: 2 SPRAYS EVERY HALF-HOUR, 4 SPRAYS
     Route: 045

REACTIONS (3)
  - DEPENDENCE [None]
  - INCORRECT DRUG ADMINISTRATION DURATION [None]
  - OVERDOSE [None]
